FAERS Safety Report 22692264 (Version 2)
Quarter: 2024Q3

REPORT INFORMATION
  Report Type: Spontaneous
  Country: US (occurrence: US)
  Receive Date: 20230711
  Receipt Date: 20240719
  Transmission Date: 20241017
  Serious: No
  Sender: UPSHER-SMITH
  Company Number: US-UPSHER-SMITH LABORATORIES, LLC-2023USL00345

PATIENT
  Sex: Male

DRUGS (3)
  1. TESTOSTERONE [Suspect]
     Active Substance: TESTOSTERONE
     Dosage: 50 MG, 1X/DAY
     Route: 061
     Dates: start: 202303
  2. TESTOSTERONE [Suspect]
     Active Substance: TESTOSTERONE
     Dosage: 50 MG, 1X/DAY TO FOREARM
     Route: 061
  3. TESTOSTERONE [Suspect]
     Active Substance: TESTOSTERONE
     Dosage: 50 MG, 1X/DAY TO FOREARM
     Route: 061

REACTIONS (2)
  - Drug ineffective [Unknown]
  - Product administered at inappropriate site [Unknown]

NARRATIVE: CASE EVENT DATE: 20230301
